FAERS Safety Report 26168304 (Version 1)
Quarter: 2025Q4

REPORT INFORMATION
  Report Type: Spontaneous
  Country: JP (occurrence: JP)
  Receive Date: 20251217
  Receipt Date: 20251217
  Transmission Date: 20260117
  Serious: Yes (Other)
  Sender: JOHNSON AND JOHNSON
  Company Number: JP-JNJFOC-20251223026

PATIENT

DRUGS (4)
  1. RYBREVANT [Suspect]
     Active Substance: AMIVANTAMAB-VMJW
     Indication: Product used for unknown indication
     Dosage: 1ST COURSE, DAY1
     Route: 041
  2. RYBREVANT [Suspect]
     Active Substance: AMIVANTAMAB-VMJW
     Dosage: 1ST COURSE, DAY2
     Route: 041
  3. RYBREVANT [Suspect]
     Active Substance: AMIVANTAMAB-VMJW
     Dosage: 1ST COURSE, DAY8
     Route: 041
  4. RYBREVANT [Suspect]
     Active Substance: AMIVANTAMAB-VMJW
     Dosage: 2ND CYCLE
     Route: 041

REACTIONS (1)
  - Cytopenia [Unknown]
